FAERS Safety Report 5319336-5 (Version None)
Quarter: 2007Q2

REPORT INFORMATION
  Report Type: 
  Country: None (occurrence: None)
  Receive Date: 20070508
  Receipt Date: 20070427
  Transmission Date: 20071010
  Serious: Yes (Hospitalization)
  Sender: FDA-Public Use
  Company Number: US-GENENTECH-240694

PATIENT
  Sex: Male

DRUGS (13)
  1. BEVACIZUMAB [Suspect]
     Indication: COLORECTAL CANCER METASTATIC
     Dosage: 5 MG/KG, Q2W
     Route: 042
     Dates: start: 20061219
  2. OXALIPLATIN [Suspect]
     Indication: COLORECTAL CANCER METASTATIC
     Dosage: 85 MG/M2, Q2W
     Route: 042
     Dates: start: 20061219
  3. LEUCOVORIN CALCIUM [Suspect]
     Indication: COLORECTAL CANCER METASTATIC
     Dosage: 200 MG/M2, Q2W
     Route: 042
     Dates: start: 20061219
  4. FLUOROURACIL [Suspect]
     Indication: COLORECTAL CANCER METASTATIC
     Dosage: 2400 MG/M2, Q2W
     Route: 042
     Dates: start: 20061219
  5. CALCIUM/MAGNESIUM OR PLACEBO [Suspect]
     Indication: COLORECTAL CANCER METASTATIC
     Dosage: 1 UNIT, Q2W
     Route: 042
     Dates: start: 20061219
  6. ACETYLSALICYLIC ACID SRT [Concomitant]
     Indication: PROPHYLAXIS
     Dosage: 81 MG, UNK
     Dates: start: 20061201
  7. GLUCOSAMINE [Concomitant]
     Indication: PROPHYLAXIS
  8. PROCHLORPERAZINE EDISYLATE [Concomitant]
     Indication: NAUSEA
     Dosage: 25 MG, UNK
     Dates: start: 20061221
  9. MACROGOL [Concomitant]
     Indication: CONSTIPATION
     Dates: start: 20070201
  10. GRANISETRON [Concomitant]
     Indication: NAUSEA
     Dosage: 1 MG, UNK
     Dates: start: 20070201
  11. CARVEDILOL [Concomitant]
     Indication: BLOOD PRESSURE
     Dosage: 3.125 MG, UNK
     Dates: start: 20070318
  12. SIMVASTATIN [Concomitant]
     Indication: DRUG USE FOR UNKNOWN INDICATION
     Dates: start: 20070318
  13. VITAMIN CAP [Concomitant]
     Indication: DRUG USE FOR UNKNOWN INDICATION
     Dates: start: 20070318

REACTIONS (1)
  - CHEST PAIN [None]
